FAERS Safety Report 16356546 (Version 1)
Quarter: 2019Q2

REPORT INFORMATION
  Report Type: Spontaneous
  Country: US (occurrence: US)
  Receive Date: 20190527
  Receipt Date: 20190527
  Transmission Date: 20190711
  Serious: Yes (Other)
  Sender: FDA-Public Use
  Company Number: US-SA-2019SA137051

PATIENT
  Age: 59 Year
  Sex: Female

DRUGS (3)
  1. NASACORT ALLERGY 24HR [Suspect]
     Active Substance: TRIAMCINOLONE ACETONIDE
     Indication: SEASONAL ALLERGY
     Dosage: UNK UNK, UNK
     Route: 045
     Dates: start: 2008, end: 2011
  2. NASACORT ALLERGY 24HR [Suspect]
     Active Substance: TRIAMCINOLONE ACETONIDE
     Dosage: UNK UNK, UNK
     Route: 045
     Dates: start: 20190420
  3. NASACORT ALLERGY 24HR [Suspect]
     Active Substance: TRIAMCINOLONE ACETONIDE
     Dosage: UNK UNK, UNK
     Route: 045
     Dates: start: 2015

REACTIONS (3)
  - Vitreous detachment [Unknown]
  - Vitreous floaters [Unknown]
  - Photopsia [Unknown]

NARRATIVE: CASE EVENT DATE: 20190512
